FAERS Safety Report 5696364-1 (Version None)
Quarter: 2008Q2

REPORT INFORMATION
  Report Type: 
  Country: None (occurrence: None)
  Receive Date: 20080408
  Receipt Date: 20080326
  Transmission Date: 20081010
  Serious: Yes (Other)
  Sender: FDA-Public Use
  Company Number: GB-PFIZER INC-2008027598

PATIENT
  Age: 45 Year
  Sex: Female
  Weight: 79.5 kg

DRUGS (1)
  1. CHAMPIX [Suspect]
     Indication: SMOKING CESSATION THERAPY
     Dosage: TEXT:1 MG
     Route: 048
     Dates: start: 20070727, end: 20070806

REACTIONS (4)
  - LETHARGY [None]
  - MALAISE [None]
  - OEDEMA MOUTH [None]
  - TONGUE COATED [None]
